FAERS Safety Report 14268907 (Version 3)
Quarter: 2017Q4

REPORT INFORMATION
  Report Type: Spontaneous
  Country: US (occurrence: US)
  Receive Date: 20171211
  Receipt Date: 20171220
  Transmission Date: 20180321
  Serious: No
  Sender: FDA-Public Use
  Company Number: US-MERZ NORTH AMERICA, INC.-17MRZ-00403

PATIENT
  Sex: Female
  Weight: 63.56 kg

DRUGS (2)
  1. XEOMIN [Suspect]
     Active Substance: INCOBOTULINUMTOXINA
     Indication: SKIN COSMETIC PROCEDURE
     Dosage: 20 UNITS
     Route: 030
  2. TATTOO OF EYEBROWS [Concomitant]
     Indication: TATTOO
     Dosage: UNKNOWN
     Route: 065

REACTIONS (1)
  - Periorbital oedema [Recovering/Resolving]
